FAERS Safety Report 23170306 (Version 1)
Quarter: 2023Q4

REPORT INFORMATION
  Report Type: Spontaneous
  Country: IT (occurrence: IT)
  Receive Date: 20231110
  Receipt Date: 20231110
  Transmission Date: 20240109
  Serious: Yes (Hospitalization, Other)
  Sender: FDA-Public Use
  Company Number: IT-002147023-NVSC2023IT235364

PATIENT
  Age: 59 Year
  Sex: Female

DRUGS (1)
  1. ERENUMAB [Suspect]
     Active Substance: ERENUMAB
     Indication: Migraine
     Dosage: 140 MG, FOR TWO YEARS (WITH A THREE-MONTH SUSPENSION IN BETWEEN)
     Route: 058
     Dates: start: 202102

REACTIONS (1)
  - Aortic dissection [Unknown]
